FAERS Safety Report 8287958-8 (Version None)
Quarter: 2012Q2

REPORT INFORMATION
  Report Type: 
  Country: None (occurrence: None)
  Receive Date: 20120411
  Receipt Date: 20120411
  Transmission Date: 20120825
  Serious: Yes (Hospitalization)
  Sender: FDA-Public Use
  Company Number: None

PATIENT
  Age: 63 Year
  Sex: Female
  Weight: 76.1 kg

DRUGS (6)
  1. AFINITOR [Suspect]
     Indication: RENAL CELL CARCINOMA
     Dosage: (1 IN 1 D), PER ORAL
     Route: 048
     Dates: start: 20120228
  2. ZANTAC [Concomitant]
  3. STOOL SOFTNER (DOCUSATE SODIUM) [Concomitant]
  4. CALCIUM CARBONATE [Concomitant]
  5. IRON SUPPLEMENT (IRON) [Concomitant]
  6. MULTIVITAMIN [Concomitant]

REACTIONS (3)
  - CONFUSIONAL STATE [None]
  - APHASIA [None]
  - DYSARTHRIA [None]
